FAERS Safety Report 8913993 (Version 1)
Quarter: 2012Q4

REPORT INFORMATION
  Report Type: Spontaneous
  Country: US (occurrence: None)
  Receive Date: 20121115
  Receipt Date: 20121115
  Transmission Date: 20130627
  Serious: Yes (Life-Threatening, Disabling, Other)
  Sender: FDA-Public Use
  Company Number: None

PATIENT
  Age: 64 Year
  Sex: Female
  Weight: 58.06 kg

DRUGS (1)
  1. LEVIMIR [Suspect]
     Indication: TYPE I DIABETES MELLITUS
     Dosage: 12 units am and 8 units pm   am and pm   IM
     Route: 030
     Dates: start: 20121105, end: 20121203

REACTIONS (3)
  - Drug ineffective [None]
  - Blood glucose increased [None]
  - Product quality issue [None]
